FAERS Safety Report 19312014 (Version 2)
Quarter: 2021Q3

REPORT INFORMATION
  Report Type: Other
  Country: US (occurrence: US)
  Receive Date: 20210527
  Receipt Date: 20210715
  Transmission Date: 20211014
  Serious: No
  Sender: FDA-Public Use
  Company Number: US-NEUROCRINE BIOSCIENCES INC.-2021NBI02465

PATIENT

DRUGS (2)
  1. DIFLUCAN [Interacting]
     Active Substance: FLUCONAZOLE
     Dosage: UNK
  2. INGREZZA [Suspect]
     Active Substance: VALBENAZINE
     Indication: TARDIVE DYSKINESIA
     Dosage: 80 MILLIGRAM, QD
     Route: 048
     Dates: start: 20190220

REACTIONS (2)
  - Urinary tract infection [Recovered/Resolved]
  - Drug interaction [Unknown]
